FAERS Safety Report 17773076 (Version 1)
Quarter: 2020Q2

REPORT INFORMATION
  Report Type: Spontaneous
  Country: US (occurrence: US)
  Receive Date: 20200512
  Receipt Date: 20200512
  Transmission Date: 20200714
  Serious: Yes (Other)
  Sender: FDA-Public Use
  Company Number: US-BAUSCH-BL-2020-013767

PATIENT
  Sex: Female

DRUGS (3)
  1. XIFAXAN [Suspect]
     Active Substance: RIFAXIMIN
     Dosage: SAMPLES PROVIDED BY HER DOCTOR
     Route: 048
     Dates: start: 20200424, end: 202004
  2. XIFAXAN [Suspect]
     Active Substance: RIFAXIMIN
     Dosage: FROM THE PHARMACY DISPENSED IN A PHARMACY VIAL AND STARTED THE 1ST AND 2ND OF MAY
     Route: 048
     Dates: start: 20200501, end: 20200505
  3. XIFAXAN [Suspect]
     Active Substance: RIFAXIMIN
     Indication: IRRITABLE BOWEL SYNDROME
     Route: 048
     Dates: start: 2012

REACTIONS (7)
  - Nausea [Not Recovered/Not Resolved]
  - Dizziness [Not Recovered/Not Resolved]
  - Product quality issue [Unknown]
  - Dehydration [Recovered/Resolved]
  - Fatigue [Unknown]
  - Headache [Not Recovered/Not Resolved]
  - Product size issue [Unknown]

NARRATIVE: CASE EVENT DATE: 202004
